FAERS Safety Report 5367327-0 (Version None)
Quarter: 2007Q2

REPORT INFORMATION
  Report Type: 
  Country: None (occurrence: None)
  Receive Date: 20070622
  Receipt Date: 20060508
  Transmission Date: 20071010
  Serious: No
  Sender: FDA-Public Use
  Company Number: US-ASTRAZENECA-2006UW08928

PATIENT
  Age: 76 Year
  Sex: Female
  Weight: 82.1 kg

DRUGS (6)
  1. PULMICORT RESPULES [Suspect]
     Indication: ASTHMA
     Route: 055
     Dates: start: 20060401
  2. PULMICORT RESPULES [Suspect]
     Indication: CHRONIC OBSTRUCTIVE PULMONARY DISEASE
     Route: 055
     Dates: start: 20060401
  3. FUROSEMIDE [Concomitant]
  4. ALBUTEROL [Concomitant]
  5. SYNTHROID [Concomitant]
  6. SPIRONOLACTONE [Concomitant]

REACTIONS (3)
  - ASTHENIA [None]
  - COUGH [None]
  - IRRITABILITY [None]
